FAERS Safety Report 7003823-8 (Version None)
Quarter: 2010Q3

REPORT INFORMATION
  Report Type: 
  Country: None (occurrence: None)
  Receive Date: 20100920
  Receipt Date: 20091203
  Transmission Date: 20110219
  Serious: No
  Sender: FDA-Public Use
  Company Number: US-WYE-H12521209

PATIENT
  Age: 43 Year
  Sex: Female

DRUGS (2)
  1. PRISTIQ [Suspect]
     Indication: DEPRESSION
     Route: 048
     Dates: start: 20091202
  2. PRISTIQ [Suspect]
     Indication: ANXIETY

REACTIONS (2)
  - APATHY [None]
  - ASTHENOPIA [None]
